FAERS Safety Report 10930084 (Version 1)
Quarter: 2015Q1

REPORT INFORMATION
  Report Type: Spontaneous
  Country: US (occurrence: None)
  Receive Date: 20150318
  Receipt Date: 20150318
  Transmission Date: 20150721
  Serious: Yes (Other)
  Sender: FDA-Public Use
  Company Number: None

PATIENT
  Age: 5 Year
  Sex: Male
  Weight: 24.04 kg

DRUGS (1)
  1. INTUNIV [Suspect]
     Active Substance: GUANFACINE HYDROCHLORIDE
     Indication: IMPULSE-CONTROL DISORDER
     Route: 048
     Dates: start: 20150303, end: 20150306

REACTIONS (2)
  - Obsessive-compulsive disorder [None]
  - Aggression [None]

NARRATIVE: CASE EVENT DATE: 20150316
